FAERS Safety Report 4291865-5 (Version None)
Quarter: 2004Q1

REPORT INFORMATION
  Report Type: 
  Country: None (occurrence: None)
  Receive Date: 20040211
  Receipt Date: 20030805
  Transmission Date: 20041129
  Serious: No
  Sender: FDA-Public Use
  Company Number: US-GLAXOSMITHKLINE-A0420575A

PATIENT
  Age: 60 Year
  Sex: Male

DRUGS (2)
  1. IMITREX [Suspect]
     Route: 065
  2. IMITREX [Suspect]
     Dosage: 100MG UNKNOWN
     Route: 048

REACTIONS (1)
  - POLLAKIURIA [None]
